FAERS Safety Report 17836010 (Version 1)
Quarter: 2020Q2

REPORT INFORMATION
  Report Type: Spontaneous
  Country: AU (occurrence: AU)
  Receive Date: 20200528
  Receipt Date: 20200528
  Transmission Date: 20200714
  Serious: Yes (Death)
  Sender: FDA-Public Use
  Company Number: AU-PFIZER INC-2020206391

PATIENT

DRUGS (2)
  1. METHOTREXATE. [Suspect]
     Active Substance: METHOTREXATE
     Dosage: 2.5 MG, DAILY
     Route: 048
  2. METOLAZONE. [Suspect]
     Active Substance: METOLAZONE
     Dosage: 2.5 MG
     Route: 048

REACTIONS (3)
  - Overdose [Fatal]
  - Transcription medication error [Fatal]
  - Wrong product administered [Fatal]
